FAERS Safety Report 10269313 (Version 1)
Quarter: 2014Q3

REPORT INFORMATION
  Report Type: Spontaneous
  Country: US (occurrence: US)
  Receive Date: 20140701
  Receipt Date: 20140701
  Transmission Date: 20150326
  Serious: Yes (Hospitalization, Other)
  Sender: FDA-Public Use
  Company Number: US-AMGEN INC.-USASP2014048191

PATIENT
  Age: 59 Year
  Sex: Female

DRUGS (1)
  1. ENBREL [Suspect]
     Active Substance: ETANERCEPT
     Indication: PSORIATIC ARTHROPATHY
     Dosage: 25 MG, EVERY 10 DAYS
     Route: 065
     Dates: start: 20110101, end: 201401

REACTIONS (10)
  - Joint swelling [Not Recovered/Not Resolved]
  - Bronchitis [Recovered/Resolved]
  - Condition aggravated [Not Recovered/Not Resolved]
  - Sinusitis [Recovered/Resolved]
  - Intervertebral disc injury [Recovered/Resolved]
  - Spinal column stenosis [Not Recovered/Not Resolved]
  - Pneumonia [Recovered/Resolved]
  - Arthralgia [Not Recovered/Not Resolved]
  - Ear infection [Recovered/Resolved]
  - Upper respiratory tract infection [Recovered/Resolved]

NARRATIVE: CASE EVENT DATE: 2011
